FAERS Safety Report 17325522 (Version 1)
Quarter: 2020Q1

REPORT INFORMATION
  Report Type: Other
  Country: CN (occurrence: CN)
  Receive Date: 20200127
  Receipt Date: 20200127
  Transmission Date: 20200409
  Serious: Yes (Hospitalization, Other)
  Sender: FDA-Public Use
  Company Number: CN-ASPEN-GLO2020CN000590

PATIENT
  Age: 25 Year
  Sex: Male

DRUGS (2)
  1. PREDNISONE. [Suspect]
     Active Substance: PREDNISONE
     Indication: UVEITIS
     Dosage: 20 MG, QD
     Route: 048
  2. LEUKERAN [Suspect]
     Active Substance: CHLORAMBUCIL
     Indication: UVEITIS
     Dosage: 2 MG, 1 DOSE DAILY
     Route: 048
     Dates: start: 20190715, end: 20191110

REACTIONS (4)
  - Drug-induced liver injury [Recovering/Resolving]
  - Dermatitis [Recovering/Resolving]
  - Hepatitis B reactivation [Recovering/Resolving]
  - Off label use [Unknown]

NARRATIVE: CASE EVENT DATE: 20191110
